FAERS Safety Report 8332373-1 (Version None)
Quarter: 2012Q1

REPORT INFORMATION
  Report Type: 
  Country: None (occurrence: None)
  Receive Date: 20120315
  Receipt Date: 20110610
  Transmission Date: 20120608
  Serious: No
  Sender: FDA-Public Use
  Company Number: PHHY2011US51656

PATIENT

DRUGS (1)
  1. GILENYA [Suspect]

REACTIONS (2)
  - DYSPEPSIA [None]
  - BACK PAIN [None]
